FAERS Safety Report 7381941-2 (Version None)
Quarter: 2011Q1

REPORT INFORMATION
  Report Type: 
  Country: None (occurrence: None)
  Receive Date: 20110329
  Receipt Date: 20110321
  Transmission Date: 20110831
  Serious: Yes (Life-Threatening, Hospitalization)
  Sender: FDA-Public Use
  Company Number: US-B.I. PHARMACEUTICALS,INC./RIDGEFIELD-2011-BP-00967BP

PATIENT
  Sex: Female
  Weight: 69.85 kg

DRUGS (20)
  1. BUMETANIDE [Concomitant]
     Route: 048
  2. NEPRO [Concomitant]
     Route: 048
  3. NEURONTIN [Concomitant]
     Dosage: 300 MG
     Route: 048
  4. PRADAXA [Suspect]
     Indication: ATRIAL FIBRILLATION
     Dosage: 300 MG
     Dates: start: 20101216, end: 20101217
  5. PRADAXA [Suspect]
     Indication: INTERNATIONAL NORMALISED RATIO ABNORMAL
  6. ASPIRIN [Concomitant]
     Dosage: 325 MG
     Route: 048
  7. IMODIUM [Concomitant]
  8. NORCO [Concomitant]
     Route: 048
  9. PRO-RENAL [Concomitant]
     Route: 048
  10. ZOCOR [Concomitant]
     Dosage: 40 MG
     Route: 048
  11. PROAMATINE [Concomitant]
     Route: 048
  12. COLACE [Concomitant]
     Dosage: 100 MG
     Route: 048
  13. ULTRAM [Concomitant]
     Route: 048
  14. ACETAMINOPHEN AND HYDROCODONE BITARTRATE [Concomitant]
  15. METOPROLOL SUCCINATE [Concomitant]
     Dosage: 150 MG
     Route: 048
  16. PRADAXA [Suspect]
     Indication: CEREBROVASCULAR ACCIDENT
  17. LANOXIN [Concomitant]
     Dosage: 125 MCG
     Route: 048
  18. WARFARIN [Suspect]
     Dates: end: 20101215
  19. FERROUS SULFATE TAB [Concomitant]
     Route: 048
  20. MULTI-VITAMIN [Concomitant]
     Route: 048

REACTIONS (5)
  - INTERNATIONAL NORMALISED RATIO INCREASED [None]
  - HAEMOGLOBIN DECREASED [None]
  - DEHYDRATION [None]
  - RENAL FAILURE [None]
  - GASTROINTESTINAL HAEMORRHAGE [None]
